FAERS Safety Report 14211017 (Version 1)
Quarter: 2017Q4

REPORT INFORMATION
  Report Type: Other
  Country: None (occurrence: CO)
  Receive Date: 20171121
  Receipt Date: 20171121
  Transmission Date: 20180321
  Serious: Yes (Other)
  Sender: FDA-Public Use
  Company Number: CO-POPULATION COUNCIL, INC.-2034775

PATIENT
  Sex: Female
  Weight: 62 kg

DRUGS (1)
  1. JADELLE [Suspect]
     Active Substance: LEVONORGESTREL
     Dates: start: 20130812

REACTIONS (2)
  - Ectopic pregnancy under hormonal contraception [Unknown]
  - Drug ineffective [None]

NARRATIVE: CASE EVENT DATE: 201706
